FAERS Safety Report 5801742-3 (Version None)
Quarter: 2008Q3

REPORT INFORMATION
  Report Type: 
  Country: None (occurrence: None)
  Receive Date: 20080707
  Receipt Date: 20080626
  Transmission Date: 20090109
  Serious: Yes (Other)
  Sender: FDA-Public Use
  Company Number: D0057727A

PATIENT
  Age: 7 Year
  Sex: Male
  Weight: 24.8 kg

DRUGS (2)
  1. LAMICTAL [Suspect]
     Indication: EPILEPSY
     Dosage: 200MG TWICE PER DAY
     Route: 048
     Dates: start: 20030101
  2. ETHOSUXIMIDE [Concomitant]
     Indication: EPILEPSY
     Dosage: 3ML TWICE PER DAY
     Route: 048
     Dates: start: 20030101

REACTIONS (2)
  - MINERAL METABOLISM DISORDER [None]
  - TOOTH MALFORMATION [None]
